FAERS Safety Report 8046634-7 (Version None)
Quarter: 2012Q1

REPORT INFORMATION
  Report Type: 
  Country: None (occurrence: None)
  Receive Date: 20120114
  Receipt Date: 20120109
  Transmission Date: 20120608
  Serious: No
  Sender: FDA-Public Use
  Company Number: US-BAYER-2012-003332

PATIENT

DRUGS (1)
  1. ALEVE (CAPLET) [Suspect]
     Indication: LIGAMENT SPRAIN

REACTIONS (1)
  - GASTRIC DISORDER [None]
